FAERS Safety Report 6306098-8 (Version None)
Quarter: 2009Q3

REPORT INFORMATION
  Report Type: 
  Country: None (occurrence: None)
  Receive Date: 20090812
  Receipt Date: 20090804
  Transmission Date: 20100115
  Serious: Yes (Hospitalization)
  Sender: FDA-Public Use
  Company Number: CH-ASTRAZENECA-2009SE06899

PATIENT
  Age: 80 Year
  Sex: Male

DRUGS (11)
  1. BELOC ZOK [Suspect]
     Route: 048
  2. DIOVAN [Suspect]
     Route: 048
     Dates: end: 20090408
  3. ALDACTONE [Suspect]
     Route: 048
     Dates: end: 20090408
  4. NEXIUM [Concomitant]
     Route: 048
  5. ASPIRIN [Concomitant]
     Route: 048
  6. CITALOPRAM HYDROBROMIDE [Concomitant]
     Route: 048
  7. PRAVASTATIN [Concomitant]
     Route: 048
  8. SINTROM [Concomitant]
  9. BOCOZYM [Concomitant]
     Dates: start: 20090331
  10. BENERVA [Concomitant]
     Route: 048
     Dates: start: 20090331
  11. IMODIUM [Concomitant]
     Route: 048
     Dates: start: 20090331, end: 20090407

REACTIONS (2)
  - CONDITION AGGRAVATED [None]
  - HYPOVOLAEMIC SHOCK [None]
